FAERS Safety Report 15420552 (Version 1)
Quarter: 2018Q3

REPORT INFORMATION
  Report Type: Spontaneous
  Country: US (occurrence: US)
  Receive Date: 20180924
  Receipt Date: 20180924
  Transmission Date: 20181010
  Serious: No
  Sender: FDA-Public Use
  Company Number: US-ALLERGAN-1814339US

PATIENT
  Sex: Female
  Weight: 107.48 kg

DRUGS (6)
  1. LINZESS [Suspect]
     Active Substance: LINACLOTIDE
     Indication: IRRITABLE BOWEL SYNDROME
     Dosage: 290 ?G, UNK
     Route: 048
     Dates: start: 201802, end: 201803
  2. GLIMEPIRIDE. [Concomitant]
     Active Substance: GLIMEPIRIDE
     Indication: DIABETES MELLITUS
     Dosage: 1 MG, BID
     Route: 065
  3. METOPROLOL. [Concomitant]
     Active Substance: METOPROLOL
     Indication: ATRIAL FIBRILLATION
     Dosage: 100 MG, BID
     Route: 065
  4. ONGLYZA [Concomitant]
     Active Substance: SAXAGLIPTIN HYDROCHLORIDE
     Indication: DIABETES MELLITUS
     Dosage: 5 MG, QD
     Route: 065
  5. POTASSIUM CHLORIDE. [Concomitant]
     Active Substance: POTASSIUM CHLORIDE
     Indication: CARDIAC DISORDER
     Dosage: 10 MEQ, QID
     Route: 065
  6. LINZESS [Suspect]
     Active Substance: LINACLOTIDE
     Indication: DIVERTICULITIS

REACTIONS (8)
  - Malaise [Not Recovered/Not Resolved]
  - Gastrointestinal pain [Not Recovered/Not Resolved]
  - Abnormal faeces [Not Recovered/Not Resolved]
  - Abdominal pain upper [Not Recovered/Not Resolved]
  - Diverticulitis [Not Recovered/Not Resolved]
  - Constipation [Not Recovered/Not Resolved]
  - Skin erosion [Not Recovered/Not Resolved]
  - Off label use [Unknown]
